FAERS Safety Report 13033812 (Version 2)
Quarter: 2017Q1

REPORT INFORMATION
  Report Type: Report from Study
  Country: US (occurrence: US)
  Receive Date: 20161216
  Receipt Date: 20170202
  Transmission Date: 20170428
  Serious: Yes (Hospitalization, Other)
  Sender: FDA-Public Use
  Company Number: US-009507513-1611USA014371

PATIENT
  Age: 60 Year
  Sex: Male
  Weight: 76.19 kg

DRUGS (6)
  1. PEMBROLIZUMAB. [Suspect]
     Active Substance: PEMBROLIZUMAB
     Indication: LYMPHOMA
     Dosage: 200 MG, Q3W
     Route: 042
     Dates: start: 20170116
  2. CELEXA [Concomitant]
     Active Substance: CITALOPRAM HYDROBROMIDE
  3. ABILIFY [Concomitant]
     Active Substance: ARIPIPRAZOLE
  4. ZOCOR [Concomitant]
     Active Substance: SIMVASTATIN
  5. FENOFIBRATE. [Concomitant]
     Active Substance: FENOFIBRATE
  6. PEMBROLIZUMAB. [Suspect]
     Active Substance: PEMBROLIZUMAB
     Indication: NON-SMALL CELL LUNG CANCER
     Dosage: 200 MG, EVERY 3 WEEKS
     Route: 042
     Dates: start: 20161107

REACTIONS (7)
  - Pain [Unknown]
  - Insomnia [Unknown]
  - Dyspnoea [Recovered/Resolved]
  - Haemoptysis [Recovered/Resolved]
  - Cardiac tamponade [Unknown]
  - Product use issue [Unknown]
  - Dyspnoea [Unknown]

NARRATIVE: CASE EVENT DATE: 2016
